FAERS Safety Report 11270894 (Version 2)
Quarter: 2015Q4

REPORT INFORMATION
  Report Type: Spontaneous
  Country: US (occurrence: US)
  Receive Date: 20150714
  Receipt Date: 20151102
  Transmission Date: 20160304
  Serious: Yes (Hospitalization)
  Sender: FDA-Public Use
  Company Number: US-BAYER-2015-378158

PATIENT
  Age: 28 Year
  Sex: Female
  Weight: 83.45 kg

DRUGS (1)
  1. MIRENA [Suspect]
     Active Substance: LEVONORGESTREL
     Indication: CONTRACEPTION
     Dosage: 20 MCG/24HR, CONT
     Route: 015
     Dates: start: 200912, end: 20110602

REACTIONS (6)
  - Device difficult to use [None]
  - Pain [None]
  - Emotional distress [None]
  - Anxiety [None]
  - Embedded device [None]
  - Injury [None]

NARRATIVE: CASE EVENT DATE: 201106
